FAERS Safety Report 21572026 (Version 3)
Quarter: 2025Q2

REPORT INFORMATION
  Report Type: Report from Study
  Country: JP (occurrence: JP)
  Receive Date: 20221109
  Receipt Date: 20250626
  Transmission Date: 20250716
  Serious: Yes (Other)
  Sender: ASTELLAS
  Company Number: JP-ASTELLAS-2022JP016192

PATIENT
  Age: 81 Year
  Sex: Female

DRUGS (1)
  1. ENFORTUMAB VEDOTIN [Suspect]
     Active Substance: ENFORTUMAB VEDOTIN
     Indication: Bladder cancer
     Route: 065

REACTIONS (3)
  - Skin disorder [Recovered/Resolved]
  - Pruritus [Recovered/Resolved]
  - Neutrophil count decreased [Recovered/Resolved]
